FAERS Safety Report 15067268 (Version 2)
Quarter: 2018Q3

REPORT INFORMATION
  Report Type: Report from Study
  Country: US (occurrence: US)
  Receive Date: 20180626
  Receipt Date: 20180706
  Transmission Date: 20181010
  Serious: Yes (Hospitalization)
  Sender: FDA-Public Use
  Company Number: US-BAYER-2018-116277

PATIENT
  Age: 75 Year
  Sex: Female
  Weight: 58.96 kg

DRUGS (4)
  1. OPSUMIT [Concomitant]
     Active Substance: MACITENTAN
  2. VELETRI [Suspect]
     Active Substance: EPOPROSTENOL
  3. ADEMPAS [Suspect]
     Active Substance: RIOCIGUAT
     Indication: PULMONARY ARTERIAL HYPERTENSION
     Dosage: 2.5 MG, TID
     Route: 048
  4. ADEMPAS [Suspect]
     Active Substance: RIOCIGUAT
     Indication: PULMONARY ARTERIAL HYPERTENSION
     Dosage: UNK
     Route: 048
     Dates: start: 20180124

REACTIONS (5)
  - Fatigue [Unknown]
  - Confusional state [None]
  - Abdominal pain [Unknown]
  - Device occlusion [Unknown]
  - Ascites [Unknown]
